FAERS Safety Report 10191218 (Version 5)
Quarter: 2015Q4

REPORT INFORMATION
  Report Type: Report from Study
  Country: JP (occurrence: JP)
  Receive Date: 20140523
  Receipt Date: 20151118
  Transmission Date: 20160304
  Serious: Yes (Hospitalization)
  Sender: FDA-Public Use
  Company Number: JP-PFIZER INC-2014137888

PATIENT
  Age: 46 Year
  Sex: Female
  Weight: 47 kg

DRUGS (17)
  1. TAKEPRON [Concomitant]
     Active Substance: LANSOPRAZOLE
     Dosage: 15 MG, 1X/DAY
     Route: 048
  2. XALKORI [Suspect]
     Active Substance: CRIZOTINIB
     Indication: NON-SMALL CELL LUNG CANCER
     Dosage: 250 MG, 1X/ DAY (1 CAPSULE)
     Route: 048
     Dates: start: 20140108, end: 20140114
  3. DECADRON [Suspect]
     Active Substance: DEXAMETHASONE
     Dosage: 1 MG, 1X/DAY
     Route: 048
     Dates: start: 20140228, end: 20140307
  4. DECADRON [Suspect]
     Active Substance: DEXAMETHASONE
     Dosage: 0.75 MG, 1X/DAY
     Dates: start: 20140318, end: 20140414
  5. DECADRON [Suspect]
     Active Substance: DEXAMETHASONE
     Dosage: 0.25 MG, 1X/DAY
     Route: 048
     Dates: start: 20140415, end: 20140429
  6. METHYCOBAL [Concomitant]
     Active Substance: METHYLCOBALAMIN
     Dosage: 500 UG, 3X/DAY
     Route: 048
  7. JUZENTAIHOTO /07985601/ [Concomitant]
     Dosage: 2.5 G, 3X/DAY
     Route: 048
  8. ZOMETA [Concomitant]
     Active Substance: ZOLEDRONIC ACID
     Dosage: 4 MG, 1X/DAY
  9. ASPARA-CA [Concomitant]
     Active Substance: CALCIUM ASPARTATE
     Dosage: 400 MG, 3X/DAY
     Route: 048
  10. SELBEX [Concomitant]
     Active Substance: TEPRENONE
     Dosage: 50 MG, 3X/DAY
     Route: 048
  11. ALINAMIN F [Concomitant]
     Active Substance: FURSULTIAMINE HYDROCHLORIDE
     Dosage: 25 MG, 3X/DAY
     Route: 048
  12. DECADRON [Suspect]
     Active Substance: DEXAMETHASONE
     Dosage: 0.5 MG, 1X/DAY
     Dates: start: 20140308, end: 20140317
  13. HOCHUEKKITO /07973001/ [Concomitant]
     Dosage: 2.5 G, 3X/DAY
     Route: 048
  14. DECADRON [Suspect]
     Active Substance: DEXAMETHASONE
     Dosage: 0.5 MG, 1X/DAY
     Route: 048
     Dates: start: 20140115, end: 20140227
  15. DECADRON [Suspect]
     Active Substance: DEXAMETHASONE
     Dosage: 0.125 MG, 1X/DAY
     Dates: start: 20140430, end: 20140520
  16. XALKORI [Suspect]
     Active Substance: CRIZOTINIB
     Dosage: 250 MG, 2X/DAY (2 CAPSULES)
     Route: 048
     Dates: start: 20140115
  17. GOSHAJINKIGAN [Concomitant]
     Active Substance: HERBALS
     Dosage: 2.5 G, 3X/DAY
     Route: 048
     Dates: end: 20140219

REACTIONS (1)
  - Hyperglycaemia [Recovering/Resolving]

NARRATIVE: CASE EVENT DATE: 20140204
